FAERS Safety Report 8880090 (Version 1)
Quarter: 2012Q4

REPORT INFORMATION
  Report Type: 
  Country: US (occurrence: US)
  Receive Date: 20121031
  Receipt Date: 20121031
  Transmission Date: 20130627
  Serious: No
  Sender: FDA-Public Use
  Company Number: US-009507513-1210USA010742

PATIENT
  Sex: Female

DRUGS (6)
  1. VICTRELIS [Suspect]
     Indication: HEPATITIS C
     Dosage: 800 mg, tid
     Route: 048
  2. RIBAVIRIN [Suspect]
     Route: 048
  3. PEG-INTRON [Suspect]
  4. TYLENOL [Concomitant]
  5. PAXIL [Concomitant]
  6. PROMETHAZINE [Concomitant]

REACTIONS (1)
  - Drug ineffective [Unknown]
